FAERS Safety Report 6330841-5 (Version None)
Quarter: 2009Q3

REPORT INFORMATION
  Report Type: 
  Country: None (occurrence: None)
  Receive Date: 20090827
  Receipt Date: 20090824
  Transmission Date: 20100115
  Serious: Yes (Other)
  Sender: FDA-Public Use
  Company Number: IN-ROXANE LABORATORIES, INC.-2009-RO-00864RO

PATIENT
  Age: 9 Year
  Sex: Male

DRUGS (8)
  1. OXCARBAZEPINE [Suspect]
     Indication: CONVULSION
  2. CLOBAZAM [Suspect]
     Indication: CONVULSION
     Dosage: 5 MG
  3. CLOBAZAM [Suspect]
     Dosage: 10 MG
  4. CLOBAZAM [Suspect]
     Dosage: 15 MG
  5. CLOBAZAM [Suspect]
     Dosage: 20 MG
  6. VALPROATE SODIUM [Suspect]
     Indication: CONVULSION
  7. ANTIPYRETICS [Concomitant]
     Indication: HYPERSENSITIVITY
  8. ANTIHISTAMINES [Concomitant]
     Indication: HYPERSENSITIVITY

REACTIONS (4)
  - COMPLEX PARTIAL SEIZURES [None]
  - MYOCLONUS [None]
  - PRURITUS ALLERGIC [None]
  - STEVENS-JOHNSON SYNDROME [None]
